FAERS Safety Report 9764323 (Version 1)
Quarter: 2013Q4

REPORT INFORMATION
  Report Type: Spontaneous
  Country: GB (occurrence: GB)
  Receive Date: 20131217
  Receipt Date: 20131217
  Transmission Date: 20140711
  Serious: Yes (Hospitalization, Other)
  Sender: FDA-Public Use
  Company Number: GB-ROCHE-1317550

PATIENT
  Age: 89 Year
  Sex: Female

DRUGS (9)
  1. NAPROXEN [Suspect]
     Indication: BACK PAIN
     Route: 048
     Dates: start: 20130226, end: 20130305
  2. ADIPINE [Concomitant]
  3. BENDROFLUMETHIAZIDE [Concomitant]
     Route: 065
  4. FERROUS FUMARATE [Concomitant]
     Route: 065
  5. FORCEVAL [Concomitant]
     Route: 065
  6. LANSOPRAZOLE [Concomitant]
     Route: 065
  7. LANSOPRAZOLE [Concomitant]
     Route: 065
  8. PARACETAMOL [Concomitant]
     Route: 065
  9. VITAMIN B COMPLEX [Concomitant]
     Route: 065

REACTIONS (6)
  - Renal failure acute [Recovered/Resolved]
  - Haematemesis [Recovered/Resolved]
  - Drug prescribing error [Unknown]
  - Cholelithiasis [Unknown]
  - Gastrointestinal haemorrhage [Unknown]
  - Renal cyst [Unknown]
